FAERS Safety Report 24236414 (Version 1)
Quarter: 2024Q3

REPORT INFORMATION
  Report Type: Spontaneous
  Country: SY (occurrence: SY)
  Receive Date: 20240822
  Receipt Date: 20240822
  Transmission Date: 20241016
  Serious: Yes (Hospitalization, Other)
  Sender: SINOTHERAPEUTICS
  Company Number: SY-SNT-000404

PATIENT
  Age: 28 Year
  Sex: Female

DRUGS (3)
  1. MESALAMINE [Suspect]
     Active Substance: MESALAMINE
     Indication: Colitis ulcerative
     Dosage: MESALAMINE 3G PER D
     Route: 065
  2. AZATHIOPRINE [Suspect]
     Active Substance: AZATHIOPRINE
     Indication: Colitis ulcerative
     Dosage: AZATHIOPRINE 2.5 MG PER KG PER DAY
     Route: 065
  3. INFLIXIMAB [Suspect]
     Active Substance: INFLIXIMAB
     Indication: Colitis ulcerative
     Dosage: INFLIXIMAB (5 MG PER KG) COMPLETION OF TWO INFLIXIMAB INDUCTIONS
     Route: 065

REACTIONS (6)
  - Colitis ulcerative [Recovering/Resolving]
  - Cytomegalovirus colitis [Recovering/Resolving]
  - Hypoalbuminaemia [Recovering/Resolving]
  - Faecal calprotectin increased [Recovering/Resolving]
  - Leukocytosis [Recovering/Resolving]
  - Drug ineffective [Unknown]
